FAERS Safety Report 11459162 (Version 2)
Quarter: 2015Q4

REPORT INFORMATION
  Report Type: Spontaneous
  Country: US (occurrence: US)
  Receive Date: 20150904
  Receipt Date: 20151228
  Transmission Date: 20160304
  Serious: Yes (Other)
  Sender: FDA-Public Use
  Company Number: US-PFIZER INC-2015292092

PATIENT
  Age: 77 Year
  Sex: Female
  Weight: 77 kg

DRUGS (8)
  1. XELJANZ [Suspect]
     Active Substance: TOFACITINIB CITRATE
     Dosage: 10 MG, DAILY  (TWO 5 MG TABLETS A DAY)
     Route: 048
     Dates: start: 2015, end: 20151211
  2. METHOTREXATE [Suspect]
     Active Substance: METHOTREXATE
     Indication: RHEUMATOID ARTHRITIS
     Dosage: 15 MG, WEEKLY (2.5 MG, 6 PILLS ONCE A WEEK ON ONE DAY)
     Route: 048
     Dates: start: 2011
  3. METHOTREXATE [Suspect]
     Active Substance: METHOTREXATE
     Dosage: 5 MG, WEEKLY (TWO 2.5 MG PILLS ONE DAY A WEEK )
     Route: 048
     Dates: end: 20150824
  4. XELJANZ [Suspect]
     Active Substance: TOFACITINIB CITRATE
     Indication: RHEUMATOID ARTHRITIS
     Dosage: 10 MG, DAILY (TWO 5 MG TABLETS A DAY )
     Route: 048
     Dates: start: 20150601, end: 20150824
  5. METHOTREXATE [Suspect]
     Active Substance: METHOTREXATE
     Dosage: CUT HER DOSE DOWN GRADUALLY, TO THREE, THEN TWO, THEN ONE, AND NOW SHE IS OFF IT
     Route: 048
     Dates: start: 2015, end: 20151124
  6. ORENCIA [Suspect]
     Active Substance: ABATACEPT
  7. SIMPONI [Suspect]
     Active Substance: GOLIMUMAB
     Indication: RHEUMATOID ARTHRITIS
  8. REMICADE [Suspect]
     Active Substance: INFLIXIMAB
     Indication: RHEUMATOID ARTHRITIS

REACTIONS (5)
  - Fall [Unknown]
  - Herpes simplex [Recovering/Resolving]
  - Wrist fracture [Unknown]
  - Spinal compression fracture [Unknown]
  - Oropharyngeal pain [Not Recovered/Not Resolved]

NARRATIVE: CASE EVENT DATE: 201505
